FAERS Safety Report 23259355 (Version 1)
Quarter: 2023Q4

REPORT INFORMATION
  Report Type: Report from Study
  Country: FR (occurrence: FR)
  Receive Date: 20231204
  Receipt Date: 20231204
  Transmission Date: 20240110
  Serious: Yes (Hospitalization)
  Sender: FDA-Public Use
  Company Number: FR-SA-2022SA120694

PATIENT
  Age: 48 Year
  Sex: Female

DRUGS (50)
  1. OXALIPLATIN [Suspect]
     Active Substance: OXALIPLATIN
     Indication: Colorectal cancer metastatic
     Dosage: 160 MG, 1X/DAY
     Dates: start: 20220103, end: 20220214
  2. BEVACIZUMAB [Suspect]
     Active Substance: BEVACIZUMAB
     Indication: Colorectal cancer
     Dosage: 115 MG
     Dates: start: 20220103, end: 20220103
  3. BEVACIZUMAB [Suspect]
     Active Substance: BEVACIZUMAB
     Dosage: 380 MG
     Dates: start: 20220117, end: 20220411
  4. BEVACIZUMAB [Suspect]
     Active Substance: BEVACIZUMAB
     Dosage: 385 MG
     Dates: start: 20220425, end: 20220425
  5. BEVACIZUMAB [Suspect]
     Active Substance: BEVACIZUMAB
     Dosage: 380 MG
     Dates: start: 20220509, end: 20220509
  6. BEVACIZUMAB [Suspect]
     Active Substance: BEVACIZUMAB
     Dosage: 380 MG
     Dates: start: 20220523, end: 20220523
  7. BEVACIZUMAB [Suspect]
     Active Substance: BEVACIZUMAB
     Dosage: 380 MG
     Dates: start: 20220607, end: 20220617
  8. BEVACIZUMAB [Suspect]
     Active Substance: BEVACIZUMAB
     Dosage: 380 MG
     Dates: start: 20220704, end: 20220704
  9. FLUOROURACIL [Suspect]
     Active Substance: FLUOROURACIL
     Indication: Colorectal cancer
     Dosage: 4490 MG
     Dates: start: 20220103, end: 20220103
  10. FLUOROURACIL [Suspect]
     Active Substance: FLUOROURACIL
     Dosage: 750 MG
     Dates: start: 20220103, end: 20220131
  11. FLUOROURACIL [Suspect]
     Active Substance: FLUOROURACIL
     Dosage: 4510 MG
     Dates: start: 20220117, end: 20220131
  12. FLUOROURACIL [Suspect]
     Active Substance: FLUOROURACIL
     Dosage: 1253 MG
     Dates: start: 20220131, end: 20220131
  13. FLUOROURACIL [Suspect]
     Active Substance: FLUOROURACIL
     Dosage: 3790 MG
     Dates: start: 20220215, end: 20220215
  14. FLUOROURACIL [Suspect]
     Active Substance: FLUOROURACIL
     Dosage: 630 MG
     Dates: start: 20220215, end: 20220215
  15. FLUOROURACIL [Suspect]
     Active Substance: FLUOROURACIL
     Dosage: 4460 MG
     Dates: start: 20220228, end: 20220228
  16. FLUOROURACIL [Suspect]
     Active Substance: FLUOROURACIL
     Dosage: 740 MG
     Dates: start: 20220228, end: 20220228
  17. FLUOROURACIL [Suspect]
     Active Substance: FLUOROURACIL
     Dosage: 4510 MG
     Dates: start: 20220315, end: 20220315
  18. FLUOROURACIL [Suspect]
     Active Substance: FLUOROURACIL
     Dosage: 4490 MG
     Dates: start: 20220328, end: 20220411
  19. FLUOROURACIL [Suspect]
     Active Substance: FLUOROURACIL
     Dosage: 750 MG
     Dates: start: 20220315, end: 20220509
  20. FLUOROURACIL [Suspect]
     Active Substance: FLUOROURACIL
     Dosage: 4510 MG
     Dates: start: 20220425, end: 20220509
  21. FLUOROURACIL [Suspect]
     Active Substance: FLUOROURACIL
     Dosage: 740 MG
     Dates: start: 20220523, end: 20220523
  22. FLUOROURACIL [Suspect]
     Active Substance: FLUOROURACIL
     Dosage: 4440 MG
     Dates: start: 20220523, end: 20220523
  23. FLUOROURACIL [Suspect]
     Active Substance: FLUOROURACIL
     Dosage: 740 MG
     Dates: start: 20220607, end: 20220617
  24. FLUOROURACIL [Suspect]
     Active Substance: FLUOROURACIL
     Dosage: 4440 MG
     Dates: start: 20220607, end: 20220617
  25. FLUOROURACIL [Suspect]
     Active Substance: FLUOROURACIL
     Dosage: 740 MG
     Dates: start: 20220704, end: 20220704
  26. FLUOROURACIL [Suspect]
     Active Substance: FLUOROURACIL
     Dosage: 4420 MG
     Dates: start: 20220704, end: 20220704
  27. FLUOROURACIL [Suspect]
     Active Substance: FLUOROURACIL
     Dosage: 4370 MG
     Dates: start: 20220718, end: 20220718
  28. LEUCOVORIN CALCIUM [Suspect]
     Active Substance: LEUCOVORIN CALCIUM
     Indication: Colorectal cancer
     Dosage: 400 MG, 1X/DAY
     Dates: start: 20220103, end: 20220523
  29. LEUCOVORIN CALCIUM [Suspect]
     Active Substance: LEUCOVORIN CALCIUM
     Dosage: 400 MG, 1X/DAY
     Dates: start: 20220607, end: 20220617
  30. LEUCOVORIN CALCIUM [Suspect]
     Active Substance: LEUCOVORIN CALCIUM
     Dosage: 400 MG, 1X/DAY
     Dates: start: 20220704, end: 20230718
  31. ZIMBERELIMAB [Suspect]
     Active Substance: ZIMBERELIMAB
     Indication: Colorectal cancer
     Dosage: 480 MG
     Dates: start: 20220131, end: 20220523
  32. ZIMBERELIMAB [Suspect]
     Active Substance: ZIMBERELIMAB
     Dosage: 480 MG
     Dates: start: 20220617, end: 20220718
  33. METOCLOPRAMIDE [Concomitant]
     Active Substance: METOCLOPRAMIDE
     Dosage: UNK
  34. ALPRAZOLAM [Concomitant]
     Active Substance: ALPRAZOLAM
  35. CHLORPROMAZINE [Concomitant]
     Active Substance: CHLORPROMAZINE
     Dosage: UNK
     Dates: start: 20220131
  36. ETRUMADENANT [Concomitant]
     Active Substance: ETRUMADENANT
     Indication: Colorectal cancer
     Dosage: 150 MG, 1X/DAY
     Dates: start: 20220117, end: 20220130
  37. ETRUMADENANT [Concomitant]
     Active Substance: ETRUMADENANT
     Dosage: 150 MG, 1X/DAY
     Dates: start: 20220208, end: 20220227
  38. ETRUMADENANT [Concomitant]
     Active Substance: ETRUMADENANT
     Dosage: 150 MG, 1X/DAY
     Dates: start: 20220302, end: 20220327
  39. ETRUMADENANT [Concomitant]
     Active Substance: ETRUMADENANT
     Dosage: 150 MG, 1X/DAY
     Dates: start: 20220329, end: 20220410
  40. ETRUMADENANT [Concomitant]
     Active Substance: ETRUMADENANT
     Dosage: 150 MG, 1X/DAY
     Dates: start: 20220426, end: 20220508
  41. ETRUMADENANT [Concomitant]
     Active Substance: ETRUMADENANT
     Dosage: 150 MG, 1X/DAY
     Dates: start: 20220525, end: 20220617
  42. ETRUMADENANT [Concomitant]
     Active Substance: ETRUMADENANT
     Dosage: 150 MG, 1X/DAY
     Dates: start: 20220619, end: 20220714
  43. ETRUMADENANT [Concomitant]
     Active Substance: ETRUMADENANT
     Dosage: 150 MG, 1X/DAY
     Dates: start: 20220718, end: 20220718
  44. ACETAMINOPHEN [Concomitant]
     Active Substance: ACETAMINOPHEN
  45. ONDANSETRON [Concomitant]
     Active Substance: ONDANSETRON
     Dosage: UNK
     Dates: start: 20220201
  46. VITAMIN D NOS [Concomitant]
     Active Substance: VITAMIN D NOS
     Indication: Prophylaxis
     Dosage: UNK
     Dates: start: 20220315
  47. APREPITANT [Concomitant]
     Active Substance: APREPITANT
     Dosage: UNK
     Dates: start: 20211222
  48. MAGNESIUM [Concomitant]
     Active Substance: MAGNESIUM
     Indication: Prophylaxis
     Dosage: UNK
     Dates: start: 20220315
  49. LOPERAMIDE [Concomitant]
     Active Substance: LOPERAMIDE
     Dosage: UNK
     Dates: start: 20220104
  50. MONTMORILLONITE [Concomitant]
     Active Substance: MONTMORILLONITE
     Dosage: UNK
     Dates: start: 20220104

REACTIONS (2)
  - Drug hypersensitivity [Recovered/Resolved]
  - Pyrexia [Recovered/Resolved]

NARRATIVE: CASE EVENT DATE: 20220214
